FAERS Safety Report 7087214-X (Version None)
Quarter: 2010Q4

REPORT INFORMATION
  Report Type: 
  Country: None (occurrence: None)
  Receive Date: 20101107
  Receipt Date: 20101104
  Transmission Date: 20110411
  Serious: Yes (Hospitalization, Other)
  Sender: FDA-Public Use
  Company Number: US-ABBOTT-10P-163-0681834-00

PATIENT
  Sex: Male
  Weight: 98.972 kg

DRUGS (17)
  1. NIASPAN [Suspect]
     Indication: BLOOD CHOLESTEROL INCREASED
     Dosage: AT HOUR OF SLEEP
     Route: 048
     Dates: start: 20100812
  2. NIASPAN [Suspect]
     Dosage: AT HOUR OF SLEEP
     Route: 048
     Dates: start: 20101015, end: 20101024
  3. NIASPAN [Suspect]
     Dosage: AT HOUR OF SLEEP
     Route: 048
     Dates: start: 20101024
  4. NIASPAN [Suspect]
     Dosage: AT HOUR OF SLEEP
     Route: 048
     Dates: end: 20101015
  5. NIASPAN [Suspect]
     Dosage: AT HOUR OF SLEEP
     Route: 048
  6. NIASPAN [Suspect]
     Dosage: AT HOUR OF SLEEP
     Route: 048
  7. NIASPAN [Suspect]
     Dosage: AT HOUR OF SLEEP
     Route: 048
  8. FLOMAX [Concomitant]
     Indication: PRODUCT USED FOR UNKNOWN INDICATION
  9. CRESTOR [Concomitant]
     Indication: PRODUCT USED FOR UNKNOWN INDICATION
     Route: 048
  10. ALTACE [Concomitant]
     Indication: PRODUCT USED FOR UNKNOWN INDICATION
  11. METOPROLOL [Concomitant]
     Indication: PRODUCT USED FOR UNKNOWN INDICATION
     Route: 048
  12. HYDROCHLOROTHIAZIDE [Concomitant]
     Indication: PRODUCT USED FOR UNKNOWN INDICATION
  13. LOVAZA [Concomitant]
     Indication: PRODUCT USED FOR UNKNOWN INDICATION
  14. MOVE FREE (GLUCOSAMINE SUPPLEMENT) [Concomitant]
     Indication: PRODUCT USED FOR UNKNOWN INDICATION
  15. MULTI-VITAMIN [Concomitant]
     Indication: PRODUCT USED FOR UNKNOWN INDICATION
  16. TRAMADOL HCL [Concomitant]
     Indication: BACK PAIN
     Dosage: PRN
  17. ASPIRIN [Concomitant]
     Indication: PRODUCT USED FOR UNKNOWN INDICATION
     Dosage: AT HOUR OF SLEEP 1/2 HOUR BEFORE NIASPAN
     Route: 048

REACTIONS (4)
  - ARTERIAL OCCLUSIVE DISEASE [None]
  - CHEST PAIN [None]
  - FLUSHING [None]
  - PRURITUS [None]
